FAERS Safety Report 23547026 (Version 3)
Quarter: 2024Q1

REPORT INFORMATION
  Report Type: Spontaneous
  Country: US (occurrence: US)
  Receive Date: 20240221
  Receipt Date: 20240318
  Transmission Date: 20240409
  Serious: No
  Sender: FDA-Public Use
  Company Number: US-SANOFI-01944337

PATIENT
  Age: 69 Year
  Sex: Male
  Weight: 83.9 kg

DRUGS (3)
  1. LANTUS [Suspect]
     Active Substance: INSULIN GLARGINE
     Indication: Type 2 diabetes mellitus
     Dosage: 50 ML IN THE MORNING, 50 ML IN THE EVENING, 5 ML AT MEALTIME, TID
     Route: 065
  2. LANTUS [Suspect]
     Active Substance: INSULIN GLARGINE
     Indication: Diabetes mellitus
     Dosage: 30 IU, BID
     Route: 065
  3. ACTRAPID [Concomitant]
     Active Substance: INSULIN HUMAN

REACTIONS (4)
  - Injection site bruising [Unknown]
  - Inappropriate schedule of product administration [Unknown]
  - Incorrect dose administered [Unknown]
  - Off label use [Unknown]
